FAERS Safety Report 14995357 (Version 1)
Quarter: 2018Q2

REPORT INFORMATION
  Report Type: Spontaneous
  Country: US (occurrence: US)
  Receive Date: 20180521
  Receipt Date: 20180521
  Transmission Date: 20180711
  Serious: Yes (Other)
  Sender: FDA-Public Use
  Company Number: None

PATIENT
  Age: 26 Year
  Sex: Male
  Weight: 87.75 kg

DRUGS (2)
  1. TRESIBA [Suspect]
     Active Substance: INSULIN DEGLUDEC
     Indication: TYPE 1 DIABETES MELLITUS
     Route: 058
     Dates: start: 20180514, end: 20180519
  2. LEVEMIR [Suspect]
     Active Substance: INSULIN DETEMIR

REACTIONS (3)
  - Product substitution issue [None]
  - Blood glucose decreased [None]
  - Blood glucose increased [None]

NARRATIVE: CASE EVENT DATE: 20180516
